FAERS Safety Report 12843729 (Version 1)
Quarter: 2016Q4

REPORT INFORMATION
  Report Type: Other
  Country: CA (occurrence: CA)
  Receive Date: 20161013
  Receipt Date: 20161013
  Transmission Date: 20170207
  Serious: Yes (Other)
  Sender: FDA-Public Use
  Company Number: CA-APOTEX-2016AP012872

PATIENT
  Age: 27 Year
  Sex: Female
  Weight: 52.15 kg

DRUGS (1)
  1. APO-AMOXI CLAV 875/125 [Suspect]
     Active Substance: AMOXICILLIN\CLAVULANATE POTASSIUM
     Indication: BRONCHITIS
     Dosage: 1 DF, (2 EVERY 12 HOURS)
     Route: 048

REACTIONS (4)
  - Dysuria [Unknown]
  - Vaginal discharge [Unknown]
  - Vaginal odour [Unknown]
  - Fungal infection [Unknown]
